FAERS Safety Report 8309914-3 (Version None)
Quarter: 2012Q2

REPORT INFORMATION
  Report Type: 
  Country: None (occurrence: None)
  Receive Date: 20120425
  Receipt Date: 20120423
  Transmission Date: 20120825
  Serious: Yes (Hospitalization, Other)
  Sender: FDA-Public Use
  Company Number: US-PFIZER INC-2012053122

PATIENT
  Sex: Female

DRUGS (2)
  1. NICOTROL [Suspect]
     Indication: SMOKING CESSATION THERAPY
     Dosage: UNK
     Dates: start: 20080101
  2. CHANTIX [Suspect]
     Indication: SMOKING CESSATION THERAPY
     Dosage: UNK

REACTIONS (11)
  - SURGERY [None]
  - ABNORMAL DREAMS [None]
  - DIARRHOEA [None]
  - DIVERTICULITIS [None]
  - VOMITING [None]
  - NIGHT SWEATS [None]
  - LIMB DISCOMFORT [None]
  - TOBACCO USER [None]
  - SKIN LESION [None]
  - THROAT CANCER [None]
  - COLD SWEAT [None]
